FAERS Safety Report 20160865 (Version 1)
Quarter: 2021Q4

REPORT INFORMATION
  Report Type: Spontaneous
  Country: US (occurrence: US)
  Receive Date: 20211208
  Receipt Date: 20211208
  Transmission Date: 20220303
  Serious: Yes (Other)
  Sender: FDA-Public Use
  Company Number: US-ELITE LABORATORIES INC.-2021ELT00206

PATIENT
  Age: 42 Year
  Sex: Male

DRUGS (2)
  1. PHENTERMINE [Suspect]
     Active Substance: PHENTERMINE
     Indication: Obesity
     Route: 065
  2. DIETHYLPROPION HYDROCHLORIDE [Suspect]
     Active Substance: DIETHYLPROPION HYDROCHLORIDE
     Indication: Obesity
     Dosage: 75 MG, 1X/DAY
     Route: 065

REACTIONS (1)
  - Duodenitis [Recovered/Resolved]
